FAERS Safety Report 8033618-8 (Version None)
Quarter: 2012Q1

REPORT INFORMATION
  Report Type: 
  Country: None (occurrence: None)
  Receive Date: 20120110
  Receipt Date: 20120106
  Transmission Date: 20120608
  Serious: Yes (Hospitalization, Other)
  Sender: FDA-Public Use
  Company Number: FR-ROCHE-1006286

PATIENT
  Sex: Male
  Weight: 67 kg

DRUGS (5)
  1. PEGINTERFERON ALFA-2A [Suspect]
     Indication: PRODUCT USED FOR UNKNOWN INDICATION
     Dates: start: 20110224, end: 20110818
  2. COPEGUS [Suspect]
     Indication: PRODUCT USED FOR UNKNOWN INDICATION
     Dates: start: 20110224, end: 20110625
  3. GUANADREL [Concomitant]
     Indication: EPILEPSY
     Dates: start: 19800101
  4. NEXIUM [Concomitant]
     Dates: start: 20100101
  5. SYMBICORT [Concomitant]
     Dates: start: 20100101

REACTIONS (2)
  - SIGMOIDITIS [None]
  - PNEUMONIA PNEUMOCOCCAL [None]
